FAERS Safety Report 8255443-5 (Version None)
Quarter: 2012Q1

REPORT INFORMATION
  Report Type: 
  Country: None (occurrence: None)
  Receive Date: 20120322
  Receipt Date: 20111123
  Transmission Date: 20120608
  Serious: Yes (Hospitalization)
  Sender: FDA-Public Use
  Company Number: UTC-012757

PATIENT
  Age: 38 Year
  Sex: Female

DRUGS (2)
  1. TYVASO [Suspect]
     Indication: PULMONARY ARTERIAL HYPERTENSION
     Dosage: 216 MCG (54 MCG, 4 IN 1 D), INHALATION
     Route: 055
     Dates: start: 20110803
  2. TRACLEER [Concomitant]

REACTIONS (6)
  - FALL [None]
  - SYNCOPE [None]
  - JOINT INJURY [None]
  - MIGRAINE [None]
  - CONTUSION [None]
  - CHEST PAIN [None]
